FAERS Safety Report 5983673-1 (Version None)
Quarter: 2008Q4

REPORT INFORMATION
  Report Type: 
  Country: None (occurrence: None)
  Receive Date: 20081205
  Receipt Date: 20081205
  Transmission Date: 20090506
  Serious: Yes (Hospitalization)
  Sender: FDA-Public Use
  Company Number: None

PATIENT
  Sex: Male
  Weight: 16.4 kg

DRUGS (3)
  1. CYTARABINE [Suspect]
     Dosage: 5440 MG
  2. IDARUBICIN HCL [Suspect]
     Dosage: 24 MG
  3. LESTAURTINIB [Suspect]
     Dosage: 1302 MG

REACTIONS (3)
  - ALANINE AMINOTRANSFERASE INCREASED [None]
  - ASPARTATE AMINOTRANSFERASE INCREASED [None]
  - FEBRILE NEUTROPENIA [None]
